FAERS Safety Report 19271935 (Version 2)
Quarter: 2024Q1

REPORT INFORMATION
  Report Type: Spontaneous
  Country: US (occurrence: US)
  Receive Date: 20210519
  Receipt Date: 20240201
  Transmission Date: 20240410
  Serious: No
  Sender: FDA-Public Use
  Company Number: US-NOVEN PHARMACEUTICALS, INC.-2021US000687

PATIENT
  Sex: Female

DRUGS (4)
  1. DAYTRANA [Suspect]
     Active Substance: METHYLPHENIDATE
     Indication: Attention deficit hyperactivity disorder
     Dosage: 20MG/9 HOURS, 1 PATCH DAILY
     Route: 062
     Dates: start: 20210127
  2. DAYTRANA [Suspect]
     Active Substance: METHYLPHENIDATE
     Indication: Autism spectrum disorder
     Dosage: 30MG/9 HOURS, 1 PATCH DAILY
     Route: 062
     Dates: start: 202101, end: 20210126
  3. DAYTRANA [Suspect]
     Active Substance: METHYLPHENIDATE
     Dosage: 20MG/9 HOURS, 1 PATCH DAILY
     Route: 062
     Dates: start: 2020, end: 202101
  4. MIRALAX [Concomitant]
     Active Substance: POLYETHYLENE GLYCOL 3350
     Indication: Dyspepsia
     Dosage: UNKNOWN

REACTIONS (6)
  - Therapeutic product ineffective [Not Recovered/Not Resolved]
  - Incorrect dose administered [Not Recovered/Not Resolved]
  - Accidental exposure to product [Recovered/Resolved]
  - Product administration error [Not Recovered/Not Resolved]
  - Device difficult to use [Not Recovered/Not Resolved]
  - Device adhesion issue [Not Recovered/Not Resolved]

NARRATIVE: CASE EVENT DATE: 20200101
